FAERS Safety Report 14008270 (Version 1)
Quarter: 2017Q3

REPORT INFORMATION
  Report Type: Spontaneous
  Country: US (occurrence: None)
  Receive Date: 20170925
  Receipt Date: 20170925
  Transmission Date: 20171128
  Serious: No
  Sender: FDA-Public Use
  Company Number: None

PATIENT
  Sex: Female
  Weight: 53.07 kg

DRUGS (2)
  1. ACTEMRA [Suspect]
     Active Substance: TOCILIZUMAB
     Indication: RHEUMATOID ARTHRITIS
     Route: 058
     Dates: start: 201410
  2. PROLIA [Suspect]
     Active Substance: DENOSUMAB
     Dosage: FREQUENCY - Q 6MO
     Route: 058
     Dates: start: 201508

REACTIONS (2)
  - Hordeolum [None]
  - Pneumonia [None]
